FAERS Safety Report 23688676 (Version 1)
Quarter: 2024Q1

REPORT INFORMATION
  Report Type: Report from Study
  Country: US (occurrence: US)
  Receive Date: 20240329
  Receipt Date: 20240329
  Transmission Date: 20240410
  Serious: Yes (Hospitalization, Other)
  Sender: FDA-Public Use
  Company Number: US-ABBVIE-5687952

PATIENT
  Age: 22 Year
  Sex: Female

DRUGS (2)
  1. SKYRIZI [Suspect]
     Active Substance: RISANKIZUMAB-RZAA
     Indication: Psoriasis
     Route: 058
     Dates: start: 20211203
  2. SKYRIZI [Suspect]
     Active Substance: RISANKIZUMAB-RZAA
     Indication: Psoriasis

REACTIONS (11)
  - Haemoglobin decreased [Unknown]
  - Head injury [Unknown]
  - Mobility decreased [Unknown]
  - Anaemia [Unknown]
  - Unevaluable event [Unknown]
  - Dehydration [Unknown]
  - Fall [Recovered/Resolved]
  - Urinary tract infection [Unknown]
  - Gait disturbance [Unknown]
  - Fall [Unknown]
  - Balance disorder [Unknown]

NARRATIVE: CASE EVENT DATE: 20230301
